FAERS Safety Report 9657596 (Version 2)
Quarter: 2013Q4

REPORT INFORMATION
  Report Type: Spontaneous
  Country: US (occurrence: US)
  Receive Date: 20131030
  Receipt Date: 20131030
  Transmission Date: 20140711
  Serious: Yes (Death)
  Sender: FDA-Public Use
  Company Number: US-NAPPMUNDI-USA-2009-0037131

PATIENT
  Age: 18 Year
  Sex: Female

DRUGS (2)
  1. OXYCONTIN TABLETS [Suspect]
     Indication: DRUG ABUSE
     Dosage: 240 MG, SINGLE
     Route: 048
  2. ALPRAZOLAM [Suspect]
     Indication: PRODUCT USED FOR UNKNOWN INDICATION

REACTIONS (2)
  - Accidental overdose [Fatal]
  - Drug abuse [Fatal]
